FAERS Safety Report 10027415 (Version 1)
Quarter: 2014Q1

REPORT INFORMATION
  Report Type: Spontaneous
  Country: US (occurrence: US)
  Receive Date: 20140321
  Receipt Date: 20140321
  Transmission Date: 20141002
  Serious: No
  Sender: FDA-Public Use
  Company Number: US-PFIZER INC-2014078289

PATIENT
  Sex: 0

DRUGS (1)
  1. ADVIL ALLERGY AND CONGESTION RELIEF [Suspect]
     Indication: RESPIRATORY TRACT CONGESTION
     Dosage: UNK

REACTIONS (3)
  - Drug ineffective [Unknown]
  - Respiratory tract congestion [Unknown]
  - Condition aggravated [Unknown]
